FAERS Safety Report 7269724-5 (Version None)
Quarter: 2011Q1

REPORT INFORMATION
  Report Type: 
  Country: None (occurrence: None)
  Receive Date: 20110202
  Receipt Date: 20110131
  Transmission Date: 20110831
  Serious: Yes (Life-Threatening, Other)
  Sender: FDA-Public Use
  Company Number: JP-PFIZER INC-2010146182

PATIENT
  Age: 36 Year
  Sex: Male
  Weight: 75 kg

DRUGS (1)
  1. SOLU-MEDROL [Suspect]
     Indication: BRAIN OEDEMA
     Dosage: 500 MG, PULSE THERAPY
     Route: 042
     Dates: start: 20101102, end: 20101102

REACTIONS (2)
  - DYSPNOEA [None]
  - ANAPHYLACTIC SHOCK [None]
